FAERS Safety Report 19202524 (Version 8)
Quarter: 2022Q2

REPORT INFORMATION
  Report Type: Spontaneous
  Country: BR (occurrence: BR)
  Receive Date: 20210430
  Receipt Date: 20220627
  Transmission Date: 20220721
  Serious: Yes (Congenital Anomaly, Other)
  Sender: FDA-Public Use
  Company Number: BR-BIOMARINAP-BR-2021-136273

PATIENT

DRUGS (2)
  1. VIMIZIM [Suspect]
     Active Substance: ELOSULFASE ALFA
     Indication: Mucopolysaccharidosis IV
     Dosage: UNK UNK, QW
     Route: 042
     Dates: start: 2015
  2. TRAMADOL [Concomitant]
     Active Substance: TRAMADOL
     Indication: Pain
     Dosage: UNK, TID

REACTIONS (23)
  - Kyphosis [Not Recovered/Not Resolved]
  - Spinal disorder [Not Recovered/Not Resolved]
  - Joint dislocation [Not Recovered/Not Resolved]
  - Limb operation [Recovered/Resolved]
  - Cartilage injury [Not Recovered/Not Resolved]
  - Osteochondrosis [Not Recovered/Not Resolved]
  - Lordosis [Not Recovered/Not Resolved]
  - Pain [Not Recovered/Not Resolved]
  - Arthralgia [Not Recovered/Not Resolved]
  - Gait disturbance [Not Recovered/Not Resolved]
  - Carpal tunnel syndrome [Recovering/Resolving]
  - Pain in extremity [Recovering/Resolving]
  - Joint range of motion decreased [Recovering/Resolving]
  - Knee deformity [Not Recovered/Not Resolved]
  - Mental impairment [Unknown]
  - Foot deformity [Unknown]
  - Cyst [Unknown]
  - Scoliosis [Not Recovered/Not Resolved]
  - Weight increased [Unknown]
  - Hypokinesia [Unknown]
  - Back pain [Unknown]
  - Arthropathy [Unknown]
  - Osteoarthritis [Unknown]

NARRATIVE: CASE EVENT DATE: 20211210
